FAERS Safety Report 17611736 (Version 1)
Quarter: 2020Q2

REPORT INFORMATION
  Report Type: Spontaneous
  Country: IT (occurrence: IT)
  Receive Date: 20200401
  Receipt Date: 20200401
  Transmission Date: 20200713
  Serious: Yes (Other)
  Sender: FDA-Public Use
  Company Number: IT-MALLINCKRODT-T202001529

PATIENT
  Sex: Male

DRUGS (2)
  1. ANTICOAGULANT CITRATE DEXTROSE SOLUTION (ACD) NOS [Concomitant]
     Active Substance: CITRIC ACID MONOHYDRATE\DEXTROSE\SODIUM CITRATE
     Indication: ANTICOAGULANT THERAPY
     Route: 065
  2. UVADEX [Suspect]
     Active Substance: METHOXSALEN
     Indication: ACUTE GRAFT VERSUS HOST DISEASE
     Dosage: UNK, EXTRACORPOREAL
     Route: 050
     Dates: start: 20200326

REACTIONS (2)
  - Product use in unapproved indication [Unknown]
  - Cystitis [Unknown]
